FAERS Safety Report 5252775-X (Version None)
Quarter: 2007Q1

REPORT INFORMATION
  Report Type: 
  Country: None (occurrence: None)
  Receive Date: 20070301
  Receipt Date: 20061211
  Transmission Date: 20070707
  Serious: No
  Sender: FDA-Public Use
  Company Number: US-GLAXOSMITHKLINE-A0629702A

PATIENT
  Age: 44 Year
  Sex: Female
  Weight: 59.1 kg

DRUGS (1)
  1. LAMICTAL [Suspect]
     Indication: BIPOLAR DISORDER
     Dosage: 200MG UNKNOWN
     Route: 048
     Dates: start: 20060622, end: 20061130

REACTIONS (5)
  - DYSPHAGIA [None]
  - GINGIVAL ABSCESS [None]
  - GINGIVAL CYST [None]
  - ORAL PAIN [None]
  - THROAT LESION [None]
